FAERS Safety Report 15025248 (Version 4)
Quarter: 2019Q2

REPORT INFORMATION
  Report Type: Report from Study
  Country: US (occurrence: US)
  Receive Date: 20180618
  Receipt Date: 20190415
  Transmission Date: 20190711
  Serious: Yes (Death, Hospitalization)
  Sender: FDA-Public Use
  Company Number: US-ACTELION-A-NJ2018-173689

PATIENT
  Age: 74 Year
  Sex: Male
  Weight: 92.52 kg

DRUGS (1)
  1. OPSUMIT [Suspect]
     Active Substance: MACITENTAN
     Indication: PULMONARY ARTERIAL HYPERTENSION
     Dosage: 10 MG, QD
     Route: 048
     Dates: start: 20171227

REACTIONS (16)
  - Peripheral swelling [Recovering/Resolving]
  - Treatment noncompliance [Unknown]
  - Memory impairment [Unknown]
  - Elbow operation [Recovering/Resolving]
  - Respiratory failure [Fatal]
  - Pneumonia [Fatal]
  - Dyspnoea [Unknown]
  - Dependence on oxygen therapy [Unknown]
  - Infection [Unknown]
  - Chronic obstructive pulmonary disease [Fatal]
  - Localised infection [Recovering/Resolving]
  - Mental status changes [Unknown]
  - Hypoxia [Unknown]
  - Gouty tophus [Recovering/Resolving]
  - Impaired healing [Recovering/Resolving]
  - Condition aggravated [Unknown]

NARRATIVE: CASE EVENT DATE: 201804
